FAERS Safety Report 22886499 (Version 4)
Quarter: 2024Q2

REPORT INFORMATION
  Report Type: Spontaneous
  Country: TH (occurrence: TH)
  Receive Date: 20230831
  Receipt Date: 20240503
  Transmission Date: 20240715
  Serious: Yes (Other)
  Sender: FDA-Public Use
  Company Number: TH-002147023-NVSC2022TH187521

PATIENT
  Sex: Female

DRUGS (12)
  1. ANASTROZOLE [Suspect]
     Active Substance: ANASTROZOLE
     Dosage: 1 MG ((BLUE BLISTER) AMOUNT 30)
     Route: 065
  2. ANASTROZOLE [Suspect]
     Active Substance: ANASTROZOLE
     Dosage: 1 MG ((BLUE PANEL) AMOUNT 56 TABLETS)
     Route: 065
  3. ANASTROZOLE [Suspect]
     Active Substance: ANASTROZOLE
     Indication: Product used for unknown indication
     Dosage: 1 DOSAGE FORM DAILY
     Route: 065
  4. KISQALI [Suspect]
     Active Substance: RIBOCICLIB
     Dosage: 200 MG, QD (2 TABLETS)
     Route: 048
     Dates: start: 20240422
  5. KISQALI [Suspect]
     Active Substance: RIBOCICLIB
     Indication: Breast cancer metastatic
     Dosage: 200 MG (3 TABLETS) DAILY 1 ST CYCLE
     Route: 048
     Dates: start: 20220717, end: 20220807
  6. KISQALI [Suspect]
     Active Substance: RIBOCICLIB
     Dosage: 200 MG (3 TABLETS) DAILY 2ND CYCLE
     Route: 048
     Dates: start: 20220813
  7. KISQALI [Suspect]
     Active Substance: RIBOCICLIB
     Dosage: UNK 2 TABLETS QD
     Route: 048
  8. KISQALI [Suspect]
     Active Substance: RIBOCICLIB
     Dosage: UNK, 3 TABLETS QD
     Route: 048
  9. CIPROFLOXACIN [Concomitant]
     Active Substance: CIPROFLOXACIN
     Indication: Product used for unknown indication
     Dosage: 500 MG (TAB (UROXIN) AMOUNT 14 TABLETS)
     Route: 065
  10. FERROUS SULFATE [Concomitant]
     Active Substance: FERROUS SULFATE
     Indication: Product used for unknown indication
     Dosage: 1 DOSAGE FORM, TID
     Route: 065
  11. ACETAMINOPHEN [Concomitant]
     Active Substance: ACETAMINOPHEN
     Indication: Product used for unknown indication
     Dosage: (500 MG TABLET QUANTITY 20 TABLETS)
     Route: 065
  12. XYLOCAINE [Concomitant]
     Active Substance: LIDOCAINE HYDROCHLORIDE\LIDOCAINE HYDROCHLORIDE ANHYDROUS
     Indication: Product used for unknown indication
     Dosage: (1% SERVICE QUANTITY 10 ML)
     Route: 065

REACTIONS (13)
  - Metastases to bone [Unknown]
  - Metastasis [Unknown]
  - Carcinoembryonic antigen increased [Unknown]
  - Balance disorder [Unknown]
  - Anxiety [Unknown]
  - Eating disorder [Unknown]
  - Decreased appetite [Unknown]
  - Haematocrit decreased [Unknown]
  - White blood cell count decreased [Unknown]
  - Platelet count decreased [Unknown]
  - Wound [Unknown]
  - Dyskinesia [Unknown]
  - Rash [Unknown]
